FAERS Safety Report 15858108 (Version 1)
Quarter: 2019Q1

REPORT INFORMATION
  Report Type: Spontaneous
  Country: US (occurrence: US)
  Receive Date: 20190123
  Receipt Date: 20190123
  Transmission Date: 20190417
  Serious: Yes (Other)
  Sender: FDA-Public Use
  Company Number: US-OTSUKA-2019_001087

PATIENT
  Age: 50 Year
  Sex: Female

DRUGS (10)
  1. ABILIFY [Suspect]
     Active Substance: ARIPIPRAZOLE
     Indication: DEPRESSION
     Dosage: 7.5 MG, QD (ONE HALF OF A 15MG TABLET)
     Route: 048
     Dates: end: 201805
  2. REXULTI [Suspect]
     Active Substance: BREXPIPRAZOLE
     Dosage: 1.5 MG, QD
     Route: 065
  3. REXULTI [Suspect]
     Active Substance: BREXPIPRAZOLE
     Dosage: 1.5 MG, QD
     Route: 065
  4. LEXAPRO [Concomitant]
     Active Substance: ESCITALOPRAM OXALATE
     Indication: PRODUCT USED FOR UNKNOWN INDICATION
     Dosage: UNK
     Route: 065
  5. REXULTI [Suspect]
     Active Substance: BREXPIPRAZOLE
     Dosage: 1 MG, QD (REDUCED DOSE)
     Route: 065
  6. REXULTI [Suspect]
     Active Substance: BREXPIPRAZOLE
     Dosage: 3 MG, QD
     Route: 065
     Dates: start: 201812
  7. OGESTREL [Suspect]
     Active Substance: ETHINYL ESTRADIOL\NORGESTREL
     Indication: ORAL CONTRACEPTION
     Dosage: UNK
     Route: 065
  8. ABILIFY [Suspect]
     Active Substance: ARIPIPRAZOLE
     Indication: ANXIETY
  9. REXULTI [Suspect]
     Active Substance: BREXPIPRAZOLE
     Indication: DEPRESSION
     Dosage: 0.5 MG, QD
     Route: 065
     Dates: start: 201805
  10. REXULTI [Suspect]
     Active Substance: BREXPIPRAZOLE
     Indication: ANXIETY
     Dosage: 1 MG, QD
     Route: 065

REACTIONS (9)
  - Glucose tolerance impaired [Not Recovered/Not Resolved]
  - Product use in unapproved indication [Unknown]
  - Alanine aminotransferase increased [Unknown]
  - Hyperhidrosis [Not Recovered/Not Resolved]
  - Aspartate aminotransferase increased [Unknown]
  - Feeling abnormal [Recovered/Resolved]
  - Incorrect dose administered [Unknown]
  - Drug-induced liver injury [Unknown]
  - Disease recurrence [Recovered/Resolved]

NARRATIVE: CASE EVENT DATE: 201805
